FAERS Safety Report 19292842 (Version 2)
Quarter: 2021Q2

REPORT INFORMATION
  Report Type: Spontaneous
  Country: JP (occurrence: JP)
  Receive Date: 20210524
  Receipt Date: 20210617
  Transmission Date: 20210717
  Serious: Yes (Death, Other)
  Sender: FDA-Public Use
  Company Number: JP-JNJFOC-20210544087

PATIENT
  Age: 64 Year
  Sex: Female
  Weight: 42 kg

DRUGS (13)
  1. CONTOMIN [CHLORPROMAZINE HIBENZATE] [Suspect]
     Active Substance: CHLORPROMAZINE HIBENZATE
     Indication: PSYCHIATRIC SYMPTOM
     Route: 048
     Dates: start: 20210320, end: 20210423
  2. MAGNESIUM OXIDE. [Concomitant]
     Active Substance: MAGNESIUM OXIDE
     Indication: PRODUCT USED FOR UNKNOWN INDICATION
     Route: 048
     Dates: end: 20210423
  3. RISPERDAL [Suspect]
     Active Substance: RISPERIDONE
     Indication: SCHIZOPHRENIA
     Route: 048
     Dates: end: 20200218
  4. LUNESTA [Suspect]
     Active Substance: ESZOPICLONE
     Indication: PRODUCT USED FOR UNKNOWN INDICATION
     Route: 048
     Dates: start: 20210109, end: 20210423
  5. DAIKENCHUTO [Concomitant]
     Active Substance: HERBALS
     Indication: PRODUCT USED FOR UNKNOWN INDICATION
     Route: 048
     Dates: end: 20210423
  6. ENALAPRIL MALEATE. [Concomitant]
     Active Substance: ENALAPRIL MALEATE
     Indication: PRODUCT USED FOR UNKNOWN INDICATION
     Route: 048
     Dates: start: 20201117, end: 20210423
  7. XEPLION [Suspect]
     Active Substance: PALIPERIDONE PALMITATE
     Indication: SCHIZOPHRENIA
     Route: 030
     Dates: start: 20200219, end: 20210423
  8. BELSOMRA [Suspect]
     Active Substance: SUVOREXANT
     Indication: PRODUCT USED FOR UNKNOWN INDICATION
     Route: 048
     Dates: start: 20210109, end: 20210423
  9. XEPLION [Suspect]
     Active Substance: PALIPERIDONE PALMITATE
  10. TETRAMIDE [Suspect]
     Active Substance: MIANSERIN
     Indication: PRODUCT USED FOR UNKNOWN INDICATION
     Route: 048
     Dates: start: 20210227, end: 20210423
  11. FERROUS SODIUM CITRATE [Concomitant]
     Active Substance: SODIUM FERROUS CITRATE
     Indication: PRODUCT USED FOR UNKNOWN INDICATION
     Route: 048
     Dates: start: 20201117, end: 20210423
  12. XEPLION [Suspect]
     Active Substance: PALIPERIDONE PALMITATE
  13. EQUA [Concomitant]
     Active Substance: VILDAGLIPTIN
     Indication: PRODUCT USED FOR UNKNOWN INDICATION
     Route: 048
     Dates: end: 20210423

REACTIONS (7)
  - Pelvic abscess [Unknown]
  - Thrombosis [Recovering/Resolving]
  - Hyperammonaemia [Unknown]
  - Uterine cancer [Unknown]
  - Cardiac failure acute [Fatal]
  - Abnormal behaviour [Unknown]
  - Psychiatric symptom [Unknown]

NARRATIVE: CASE EVENT DATE: 202009
